FAERS Safety Report 22059560 (Version 1)
Quarter: 2023Q1

REPORT INFORMATION
  Report Type: Spontaneous
  Country: GB (occurrence: GB)
  Receive Date: 20230303
  Receipt Date: 20230303
  Transmission Date: 20230417
  Serious: Yes (Other)
  Sender: FDA-Public Use
  Company Number: GB-MYLANLABS-2022M1020909

PATIENT
  Age: 30 Year
  Sex: Male

DRUGS (1)
  1. CLOZARIL [Suspect]
     Active Substance: CLOZAPINE
     Indication: Product used for unknown indication
     Dosage: UNK
     Route: 048
     Dates: start: 20161118, end: 20230223

REACTIONS (3)
  - Thrombocytopenia [Not Recovered/Not Resolved]
  - Therapy cessation [Unknown]
  - Epistaxis [Unknown]

NARRATIVE: CASE EVENT DATE: 20220316
